FAERS Safety Report 8261421-2 (Version None)
Quarter: 2012Q2

REPORT INFORMATION
  Report Type: 
  Country: None (occurrence: None)
  Receive Date: 20120405
  Receipt Date: 20120330
  Transmission Date: 20120825
  Serious: Yes (Other)
  Sender: FDA-Public Use
  Company Number: US-PFIZER INC-2009222297

PATIENT
  Sex: Female
  Weight: 77.098 kg

DRUGS (4)
  1. CHANTIX [Suspect]
     Dosage: UNK
     Dates: start: 20090101, end: 20090101
  2. HYDROCODONE [Concomitant]
     Indication: PAIN
     Dosage: 7.5 MG, UNK
  3. CHANTIX [Suspect]
     Indication: SMOKING CESSATION THERAPY
     Dosage: UNK
     Dates: start: 20090519, end: 20090528
  4. CHANTIX [Suspect]
     Dosage: 0.5 MG, DAILY
     Dates: start: 20090101, end: 20090101

REACTIONS (19)
  - DISTURBANCE IN ATTENTION [None]
  - DRUG CLEARANCE DECREASED [None]
  - MYALGIA [None]
  - ARTHRALGIA [None]
  - SLEEP DISORDER [None]
  - FORMICATION [None]
  - ABDOMINAL DISCOMFORT [None]
  - ANXIETY [None]
  - FLATULENCE [None]
  - RESTLESSNESS [None]
  - NAUSEA [None]
  - BURNING SENSATION [None]
  - DRUG INEFFECTIVE [None]
  - ABNORMAL DREAMS [None]
  - NECK PAIN [None]
  - BACK PAIN [None]
  - ACTIVITIES OF DAILY LIVING IMPAIRED [None]
  - DEPRESSION [None]
  - PAIN IN EXTREMITY [None]
